FAERS Safety Report 14970938 (Version 1)
Quarter: 2018Q2

REPORT INFORMATION
  Report Type: Spontaneous
  Country: KR (occurrence: KR)
  Receive Date: 20180604
  Receipt Date: 20180604
  Transmission Date: 20180711
  Serious: Yes (Other)
  Sender: FDA-Public Use
  Company Number: KR-GILEAD-2018-0341678

PATIENT
  Sex: Female

DRUGS (2)
  1. SEBIVO [Concomitant]
     Active Substance: TELBIVUDINE
     Indication: HEPATITIS B
     Dosage: UNK
     Dates: start: 2007, end: 20180531
  2. VIREAD [Suspect]
     Active Substance: TENOFOVIR DISOPROXIL FUMARATE
     Indication: HEPATITIS B
     Dosage: UNK
     Route: 065
     Dates: start: 2007, end: 20180531

REACTIONS (2)
  - Mesangioproliferative glomerulonephritis [Not Recovered/Not Resolved]
  - Haematuria [Unknown]
